FAERS Safety Report 24127880 (Version 1)
Quarter: 2024Q3

REPORT INFORMATION
  Report Type: Report from Study
  Country: US (occurrence: US)
  Receive Date: 20240723
  Receipt Date: 20240723
  Transmission Date: 20241016
  Serious: No
  Sender: VANDA PHARMACEUTICALS
  Company Number: US-VANDA PHARMACEUTICALS, INC-2023TASUS007097

PATIENT
  Age: 31 Year
  Sex: Male

DRUGS (2)
  1. HETLIOZ [Suspect]
     Active Substance: TASIMELTEON
     Indication: Non-24-hour sleep-wake disorder
     Dosage: 20 MILLIGRAM, QHS
     Route: 048
     Dates: end: 20240102
  2. HETLIOZ [Suspect]
     Active Substance: TASIMELTEON
     Dosage: 20 MILLIGRAM, QHS
     Route: 048
     Dates: start: 20240104

REACTIONS (1)
  - Middle insomnia [Recovered/Resolved]

NARRATIVE: CASE EVENT DATE: 20240102
